FAERS Safety Report 7512689-9 (Version None)
Quarter: 2011Q2

REPORT INFORMATION
  Report Type: 
  Country: None (occurrence: None)
  Receive Date: 20110531
  Receipt Date: 20100108
  Transmission Date: 20111010
  Serious: Yes (Death, Hospitalization, Other)
  Sender: FDA-Public Use
  Company Number: US-BAYER-201010318NA

PATIENT
  Age: 66 Year
  Sex: Male
  Weight: 70.295 kg

DRUGS (19)
  1. TRASYLOL [Suspect]
     Indication: CORONARY ARTERY BYPASS
     Dosage: 100 CC BOLUS [ILLEGIBLE] AND INFUSION AT 50CC/NR
     Route: 042
     Dates: start: 20010123, end: 20010123
  2. PRIMACOR [Concomitant]
  3. BUMEX [Concomitant]
  4. ACETYLSALICYLIC ACID SRT [Concomitant]
  5. ROCEPHIN [Concomitant]
     Dosage: 1 GRAM DAILY
     Route: 042
     Dates: start: 20010118
  6. HEPARIN [Concomitant]
     Dosage: UNK
     Route: 042
     Dates: start: 20010123, end: 20010123
  7. PLATELETS [Concomitant]
     Dosage: 3 UNITS
     Route: 042
  8. METOPROLOL TARTRATE [Concomitant]
     Dosage: 25MG EVERY 12 HOURS
     Route: 048
     Dates: start: 20010119
  9. DIPRIVAN [Concomitant]
     Dosage: UNK
     Route: 042
     Dates: start: 20010118
  10. FENTANYL [Concomitant]
     Dosage: 10 CC
     Route: 042
     Dates: start: 20010123, end: 20010123
  11. DARVOCET [Concomitant]
  12. ZINACEF [Concomitant]
     Dosage: 1.5 MG
     Route: 042
     Dates: start: 20010123
  13. RED BLOOD CELLS [Concomitant]
     Dosage: 4 UNITS
     Route: 042
     Dates: start: 20010123
  14. LIPITOR [Concomitant]
  15. TEQUIN [Concomitant]
     Dosage: 400 MG X1 NOW
     Route: 042
     Dates: start: 20010118, end: 20010118
  16. TEQUIN [Concomitant]
     Dosage: 200 MG DAILY
     Route: 042
     Dates: start: 20010118
  17. PROTAMINE SULFATE [Concomitant]
     Dosage: UNK
     Route: 042
     Dates: start: 20010123, end: 20010123
  18. NEOSYNEPHRINE [Concomitant]
     Dosage: UNK
     Route: 042
     Dates: start: 20010123, end: 20010123
  19. REGULAR INSULIN [Concomitant]
     Dosage: 15 UNITS
     Route: 042
     Dates: start: 20010123, end: 20010123

REACTIONS (12)
  - RENAL FAILURE [None]
  - EMOTIONAL DISTRESS [None]
  - ANXIETY [None]
  - PAIN [None]
  - FEAR [None]
  - ANHEDONIA [None]
  - DEATH [None]
  - RENAL INJURY [None]
  - RENAL IMPAIRMENT [None]
  - STRESS [None]
  - UNEVALUABLE EVENT [None]
  - INJURY [None]
